FAERS Safety Report 4869773-8 (Version None)
Quarter: 2005Q4

REPORT INFORMATION
  Report Type: 
  Country: None (occurrence: None)
  Receive Date: 20051227
  Receipt Date: 20051218
  Transmission Date: 20060501
  Serious: Yes (Other)
  Sender: FDA-Public Use
  Company Number: 2005169479

PATIENT
  Age: 69 Year
  Sex: Female
  Weight: 77.1115 kg

DRUGS (3)
  1. BENADRYL [Suspect]
     Indication: HYPERSENSITIVITY
     Dosage: ONE ULTRATAB EVERY 6 HOURS, ORAL
     Route: 048
     Dates: start: 20051213, end: 20051217
  2. LEXXEL (ENALAPRIL MALEATE, FELODIPINE) [Concomitant]
  3. SIMVASTATIN [Concomitant]

REACTIONS (3)
  - GENERALISED ERYTHEMA [None]
  - PRURITUS [None]
  - SWELLING FACE [None]
